FAERS Safety Report 7743305-9 (Version None)
Quarter: 2011Q3

REPORT INFORMATION
  Report Type: 
  Country: None (occurrence: None)
  Receive Date: 20110912
  Receipt Date: 20110829
  Transmission Date: 20111222
  Serious: Yes (Hospitalization)
  Sender: FDA-Public Use
  Company Number: US-CELGENEUS-163-21880-11081762

PATIENT
  Sex: Female
  Weight: 65.376 kg

DRUGS (7)
  1. REVLIMID [Suspect]
     Indication: MULTIPLE MYELOMA
     Dosage: 15 MILLIGRAM
     Route: 048
     Dates: start: 20101001
  2. FENTANYL [Concomitant]
     Route: 062
     Dates: start: 20101001
  3. PRILOSEC [Concomitant]
     Dosage: 20 MILLIGRAM
     Route: 048
     Dates: start: 20110301
  4. VALACYCLOVIR [Concomitant]
     Dosage: 500 MILLIGRAM
     Route: 048
     Dates: start: 20101101
  5. HYDROCODONE [Concomitant]
     Dosage: 10/325
     Route: 048
     Dates: start: 20101001
  6. IBUPROFEN [Concomitant]
     Dosage: 200 MILLIGRAM
     Route: 048
     Dates: start: 20110301
  7. DEXAMETHASONE [Concomitant]
     Dosage: 40 MILLIGRAM
     Route: 048
     Dates: start: 20101001

REACTIONS (1)
  - ARTHROPATHY [None]
